FAERS Safety Report 21925653 (Version 1)
Quarter: 2023Q1

REPORT INFORMATION
  Report Type: Spontaneous
  Country: US (occurrence: None)
  Receive Date: 20230127
  Receipt Date: 20230127
  Transmission Date: 20230417
  Serious: Yes (Hospitalization)
  Sender: FDA-Public Use
  Company Number: None

PATIENT
  Age: 81 Year
  Sex: Female

DRUGS (1)
  1. CAPECITABINE [Suspect]
     Active Substance: CAPECITABINE
     Dosage: 500MG BID ORAL?
     Route: 048

REACTIONS (5)
  - Diarrhoea [None]
  - Dehydration [None]
  - Constipation [None]
  - Alopecia [None]
  - Gastrointestinal infection [None]

NARRATIVE: CASE EVENT DATE: 20230127
